FAERS Safety Report 11779548 (Version 1)
Quarter: 2015Q4

REPORT INFORMATION
  Report Type: Spontaneous
  Country: US (occurrence: US)
  Receive Date: 20151125
  Receipt Date: 20151125
  Transmission Date: 20160304
  Serious: Yes (Other)
  Sender: FDA-Public Use
  Company Number: US-ABBVIE-15P-163-1505504-00

PATIENT
  Sex: Female
  Weight: 5.68 kg

DRUGS (2)
  1. HUMIRA [Suspect]
     Active Substance: ADALIMUMAB
     Indication: MATERNAL EXPOSURE TIMING UNSPECIFIED
     Route: 064
  2. HUMIRA [Suspect]
     Active Substance: ADALIMUMAB
     Route: 063

REACTIONS (5)
  - Exposure during breast feeding [Unknown]
  - Normal newborn [Unknown]
  - Foetal exposure during pregnancy [Unknown]
  - Prolonged labour [Recovered/Resolved]
  - Umbilical cord abnormality [Recovered/Resolved]

NARRATIVE: CASE EVENT DATE: 20150731
